FAERS Safety Report 12545075 (Version 5)
Quarter: 2016Q4

REPORT INFORMATION
  Report Type: Report from Study
  Country: US (occurrence: US)
  Receive Date: 20160711
  Receipt Date: 20161010
  Transmission Date: 20170207
  Serious: Yes (Hospitalization, Other)
  Sender: FDA-Public Use
  Company Number: US-JNJFOC-20160703638

PATIENT
  Age: 73 Year
  Sex: Male

DRUGS (1)
  1. IMBRUVICA [Suspect]
     Active Substance: IBRUTINIB
     Indication: CHRONIC LYMPHOCYTIC LEUKAEMIA
     Route: 048
     Dates: start: 20151118

REACTIONS (9)
  - Haemorrhage intracranial [Unknown]
  - Cerebral haematoma [Recovered/Resolved]
  - Fall [Not Recovered/Not Resolved]
  - Dysphagia [Unknown]
  - Brain injury [Not Recovered/Not Resolved]
  - Kidney infection [Unknown]
  - Hypersomnia [Unknown]
  - Hallucination [Not Recovered/Not Resolved]
  - Speech disorder [Not Recovered/Not Resolved]

NARRATIVE: CASE EVENT DATE: 2016
